FAERS Safety Report 6145758-9 (Version None)
Quarter: 2009Q2

REPORT INFORMATION
  Report Type: 
  Country: None (occurrence: None)
  Receive Date: 20090403
  Receipt Date: 20090323
  Transmission Date: 20091009
  Serious: Yes (Disabling)
  Sender: FDA-Public Use
  Company Number: GXKR2009GB01621

PATIENT
  Age: 50 Year
  Sex: Female

DRUGS (9)
  1. PROPRANOLOL [Suspect]
     Indication: ANXIETY
     Dosage: 40 MG, TID, ORAL
     Route: 048
     Dates: start: 20090112
  2. AMITRIPTYLINE HYDROCHLORIDE [Concomitant]
  3. CANESTEN (CLOTRIMAZOLE), 10% [Concomitant]
  4. DIAZEPAM [Concomitant]
  5. ESCITALOPRAM [Concomitant]
  6. ACETAMINOPHEN [Concomitant]
  7. PROMETHAZINE HYDROCHLORIDE TAB [Concomitant]
  8. TRAMADOL HCL [Concomitant]
  9. ZOPICLONE (ZOPICLONE) [Concomitant]

REACTIONS (3)
  - CONFUSIONAL STATE [None]
  - HYPOAESTHESIA [None]
  - RESTLESS LEGS SYNDROME [None]
